FAERS Safety Report 5501726-9 (Version None)
Quarter: 2007Q4

REPORT INFORMATION
  Report Type: 
  Country: None (occurrence: None)
  Receive Date: 20071030
  Receipt Date: 20071018
  Transmission Date: 20080405
  Serious: Yes (Hospitalization, Other)
  Sender: FDA-Public Use
  Company Number: US-BAYER-200711885BCC

PATIENT
  Age: 46 Year
  Sex: Female
  Weight: 68 kg

DRUGS (8)
  1. ASPIRIN [Suspect]
     Indication: BACK PAIN
     Dosage: TOTAL DAILY DOSE: 1000 MG  UNIT DOSE: 500 MG
     Route: 048
     Dates: start: 20070525
  2. FLONASE [Concomitant]
     Route: 045
  3. LISINOPRIL AND HYDROCHLOROTHIAZIDE [Concomitant]
     Dosage: TOTAL DAILY DOSE: 10 MG  UNIT DOSE: 10 MG
     Route: 048
  4. WATER PILL [Concomitant]
  5. HIGH BLOOD PRESSURE PILL [Concomitant]
  6. HYDROCHLOROTHIAZIDE [Concomitant]
     Dosage: TOTAL DAILY DOSE: 12.5 MG  UNIT DOSE: 12.5 MG
     Route: 048
  7. ALBUTEROL [Concomitant]
     Route: 055
  8. QVAR 40 [Concomitant]
     Route: 055

REACTIONS (13)
  - ANXIETY [None]
  - CONFUSIONAL STATE [None]
  - CONVULSION [None]
  - DRUG HYPERSENSITIVITY [None]
  - DYSPHONIA [None]
  - HYPOXIA [None]
  - LOSS OF CONSCIOUSNESS [None]
  - POLLAKIURIA [None]
  - RESPIRATORY ARREST [None]
  - RESPIRATORY FAILURE [None]
  - STATUS ASTHMATICUS [None]
  - TONIC CLONIC MOVEMENTS [None]
  - WHEEZING [None]
